FAERS Safety Report 7105472-X (Version None)
Quarter: 2010Q4

REPORT INFORMATION
  Report Type: 
  Country: None (occurrence: None)
  Receive Date: 20101110
  Receipt Date: 20101028
  Transmission Date: 20110411
  Serious: Yes (Hospitalization)
  Sender: FDA-Public Use
  Company Number: 013258

PATIENT
  Sex: Female

DRUGS (17)
  1. CERTOLIZUMAB PEGOL [Suspect]
     Indication: RHEUMATOID ARTHRITIS
     Dosage: 200 MG 1X/2 WEEKS SUBCUTANEOUS
     Route: 058
     Dates: start: 20091210
  2. PREDNISOLONE [Concomitant]
  3. KETOPROFEN [Concomitant]
  4. ZALTOPROFEN [Concomitant]
  5. VOLTAREN [Concomitant]
  6. FAMOGAST [Concomitant]
  7. MYSLEE [Concomitant]
  8. PLAVIX [Concomitant]
  9. ASPARTATE CALCIUM [Concomitant]
  10. CALFINA [Concomitant]
  11. BENET [Concomitant]
  12. RIBOFLAVIN TETRABUTYRATE [Concomitant]
  13. MAIBASTIN [Concomitant]
  14. ALUMINIUM HYDROXIDE W/ MAGNESIUM HYDROXIDE [Concomitant]
  15. ISONIAZID [Concomitant]
  16. EBASTINE [Concomitant]
  17. TRIAMCINOLONE ACETONIDE [Concomitant]

REACTIONS (6)
  - EAR PAIN [None]
  - EYELID PTOSIS [None]
  - HERPES ZOSTER OTICUS [None]
  - HYPERSENSITIVITY [None]
  - LACUNAR INFARCTION [None]
  - VIITH NERVE PARALYSIS [None]
